FAERS Safety Report 6079823-1 (Version None)
Quarter: 2009Q1

REPORT INFORMATION
  Report Type: 
  Country: None (occurrence: None)
  Receive Date: 20090212
  Receipt Date: 20090209
  Transmission Date: 20090719
  Serious: Yes (Hospitalization)
  Sender: FDA-Public Use
  Company Number: 1000003807

PATIENT
  Age: 56 Year
  Sex: Female
  Weight: 100 kg

DRUGS (4)
  1. NEBIVOLOL HCL [Suspect]
     Indication: HYPERTENSION
     Dosage: 5 MG (5 MG, 1 IN 1 D), ORAL
     Route: 048
     Dates: start: 20080718
  2. MOXONIDINE (TABLETS) [Suspect]
     Indication: HYPERTENSION
     Dosage: 0.3 MG (0.3 MG, 1 IN 1 D), ORAL
     Route: 048
     Dates: start: 20080718
  3. RASILEZ (TABLETS) [Concomitant]
  4. EXFORGE (TABLETS) [Concomitant]

REACTIONS (3)
  - HYPERTENSIVE CRISIS [None]
  - PARAESTHESIA [None]
  - WHITE BLOOD CELL COUNT INCREASED [None]
